FAERS Safety Report 5078452-6 (Version None)
Quarter: 2006Q3

REPORT INFORMATION
  Report Type: 
  Country: None (occurrence: None)
  Receive Date: 20060811
  Receipt Date: 20060731
  Transmission Date: 20061208
  Serious: Yes (Death)
  Sender: FDA-Public Use
  Company Number: SG-NOVOPROD-255742

PATIENT
  Age: 71 Year
  Sex: Male

DRUGS (3)
  1. NOVOSEVEN [Suspect]
     Indication: ACQUIRED HAEMOPHILIA WITH ANTI FVIII, XI, OR XIII
     Dosage: 70 UG /KG X 2 DOSES
  2. CYCLOPHOSPHAMIDE [Concomitant]
     Dosage: 100 MG, QD
     Route: 048
  3. PREDNISOLONE [Concomitant]
     Dosage: 60 MG, QD
     Route: 048

REACTIONS (1)
  - CEREBRAL INFARCTION [None]
